FAERS Safety Report 12178082 (Version 2)
Quarter: 2016Q1

REPORT INFORMATION
  Report Type: Report from Study
  Country: DE (occurrence: DE)
  Receive Date: 20160314
  Receipt Date: 20160330
  Transmission Date: 20160526
  Serious: Yes (Death)
  Sender: FDA-Public Use
  Company Number: DE-CELGENE-DEU-2016030115

PATIENT
  Age: 68 Year
  Sex: Male

DRUGS (5)
  1. GEMCITABINE [Concomitant]
     Active Substance: GEMCITABINE\GEMCITABINE HYDROCHLORIDE
     Indication: HODGKIN^S DISEASE
     Route: 065
     Dates: start: 201105, end: 201106
  2. GEMCITABINE [Concomitant]
     Active Substance: GEMCITABINE\GEMCITABINE HYDROCHLORIDE
     Route: 065
     Dates: end: 20111025
  3. AFM13 [Concomitant]
     Indication: HODGKIN^S DISEASE
     Route: 065
     Dates: start: 201109
  4. REVLIMID [Suspect]
     Active Substance: LENALIDOMIDE
     Indication: HODGKIN^S DISEASE
     Route: 048
     Dates: end: 201101
  5. EVEROLIMUS [Concomitant]
     Active Substance: EVEROLIMUS
     Indication: HODGKIN^S DISEASE
     Route: 065
     Dates: start: 201108

REACTIONS (1)
  - Anaplastic large-cell lymphoma [Fatal]

NARRATIVE: CASE EVENT DATE: 20110501
